FAERS Safety Report 9253682 (Version 3)
Quarter: 2013Q3

REPORT INFORMATION
  Report Type: Spontaneous
  Country: US (occurrence: US)
  Receive Date: 20130425
  Receipt Date: 20130927
  Transmission Date: 20140515
  Serious: Yes (Hospitalization, Other)
  Sender: FDA-Public Use
  Company Number: US-ASTRAZENECA-2013SE27461

PATIENT
  Age: 931 Month
  Sex: Female

DRUGS (16)
  1. NEXIUM [Suspect]
     Indication: GASTROOESOPHAGEAL REFLUX DISEASE
     Route: 048
     Dates: start: 2005, end: 2010
  2. NEXIUM [Suspect]
     Indication: GASTROOESOPHAGEAL REFLUX DISEASE
     Dosage: 1 TABLET A DAY IN THE MORNING AS PRESCRIBED BY DOCTOR THEN 2 TIMES DAILY IN 2007 THEN BACK TO 1 DAIL
     Route: 048
     Dates: start: 2005, end: 2010
  3. NEXIUM [Suspect]
     Indication: GASTROOESOPHAGEAL REFLUX DISEASE
     Route: 048
     Dates: start: 20050506
  4. NEXIUM [Suspect]
     Indication: GASTROOESOPHAGEAL REFLUX DISEASE
     Route: 048
     Dates: start: 2007
  5. NEXIUM [Suspect]
     Indication: GASTROOESOPHAGEAL REFLUX DISEASE
     Route: 048
     Dates: start: 2008, end: 2010
  6. VITAMIN B12 [Concomitant]
  7. CRESTOR [Concomitant]
     Dates: start: 20050707
  8. PHENAZOPYRID [Concomitant]
     Dates: start: 20050913
  9. BONIVA [Concomitant]
     Route: 048
     Dates: start: 20051008
  10. LESCOL [Concomitant]
     Dates: start: 20051008
  11. PROMETHAZINE [Concomitant]
     Dosage: 25 MG EVERY FOUR HOURS AS NEEDED
     Route: 048
     Dates: start: 20060809
  12. RANITIDINE [Concomitant]
     Dates: start: 20061228
  13. VISVEX [Concomitant]
     Dates: start: 20061230
  14. PREDNISOLON [Concomitant]
     Dates: start: 2012
  15. ACTONEL [Concomitant]
     Route: 048
     Dates: start: 20040524
  16. ALPRAZOLAM [Concomitant]
     Route: 048
     Dates: start: 20050105

REACTIONS (12)
  - Fibula fracture [Recovered/Resolved]
  - Cataract [Unknown]
  - Fall [Unknown]
  - Osteoporosis [Unknown]
  - Bone disorder [Unknown]
  - Poor peripheral circulation [Unknown]
  - Swelling [Unknown]
  - Calcium deficiency [Unknown]
  - Vitamin D deficiency [Unknown]
  - Ankle fracture [Unknown]
  - Osteopenia [Unknown]
  - Bone density decreased [Unknown]
